FAERS Safety Report 4303262-4 (Version None)
Quarter: 2004Q1

REPORT INFORMATION
  Report Type: 
  Country: None (occurrence: None)
  Receive Date: 20040223
  Receipt Date: 20040209
  Transmission Date: 20041129
  Serious: Yes (Hospitalization)
  Sender: FDA-Public Use
  Company Number: 2004198826JP

PATIENT
  Age: 58 Year
  Sex: Female
  Weight: 43.9 kg

DRUGS (4)
  1. HYSRON-H200(MEDROXYPROGESTERONE ACETATE) TABLET, 100-500MG [Suspect]
     Indication: BREAST CANCER METASTATIC
     Dosage: 200 MG, QID, ORAL
     Route: 048
     Dates: start: 20030424, end: 20030620
  2. FURTULON (DOXIFLURIDINE) CAPSULE [Suspect]
     Indication: BREAST CANCER METASTATIC
     Dosage: 200 MG, QID, ORAL
     Route: 048
     Dates: start: 20030424, end: 20030613
  3. BUFFERIN [Suspect]
     Indication: PROPHYLAXIS
     Dosage: 81 MG, QD, ORAL
     Route: 048
     Dates: start: 20030424, end: 20030620
  4. DOGMATYL [Concomitant]

REACTIONS (5)
  - ABDOMINAL PAIN [None]
  - BLOOD ALBUMIN DECREASED [None]
  - DIARRHOEA [None]
  - ENTERITIS [None]
  - NAUSEA [None]
